FAERS Safety Report 12036783 (Version 3)
Quarter: 2017Q4

REPORT INFORMATION
  Report Type: Report from Study
  Country: US (occurrence: US)
  Receive Date: 20160208
  Receipt Date: 20171201
  Transmission Date: 20180320
  Serious: Yes (Hospitalization, Other)
  Sender: FDA-Public Use
  Company Number: US-ROCHE-1705923

PATIENT
  Age: 30 Year
  Sex: Female
  Weight: 82 kg

DRUGS (1)
  1. TRASTUZUMAB. [Suspect]
     Active Substance: TRASTUZUMAB
     Indication: HER-2 POSITIVE BREAST CANCER
     Dosage: ON 25/NOV/2015, LAST DOSE PRIOR TO MENINGITIS?ON 09/DEC/2015, LAST DOSE PRIOR TO SEIZURE
     Route: 037
     Dates: start: 20151119

REACTIONS (4)
  - Headache [Not Recovered/Not Resolved]
  - Seizure [Recovered/Resolved]
  - Hypokalaemia [Recovered/Resolved]
  - Meningitis [Recovered/Resolved]

NARRATIVE: CASE EVENT DATE: 20151124
